FAERS Safety Report 7421385-8 (Version None)
Quarter: 2011Q2

REPORT INFORMATION
  Report Type: 
  Country: None (occurrence: None)
  Receive Date: 20110407
  Receipt Date: 20110325
  Transmission Date: 20111010
  Serious: Yes (Other)
  Sender: FDA-Public Use
  Company Number: 2011SP013974

PATIENT
  Age: 39 Year
  Sex: Male

DRUGS (1)
  1. REFLEX (MIRTAZAPINE /01293201/) [Suspect]
     Dosage: 15 MG; QD; PO
     Route: 048
     Dates: start: 20101101

REACTIONS (1)
  - BLOOD CREATINE PHOSPHOKINASE INCREASED [None]
